FAERS Safety Report 7029201-3 (Version None)
Quarter: 2010Q4

REPORT INFORMATION
  Report Type: 
  Country: None (occurrence: None)
  Receive Date: 20101005
  Receipt Date: 20100925
  Transmission Date: 20110411
  Serious: Yes (Other)
  Sender: FDA-Public Use
  Company Number: US-CELGENEUS-163-21880-10092596

PATIENT
  Age: 80 Year
  Sex: Female
  Weight: 108 kg

DRUGS (7)
  1. REVLIMID [Suspect]
     Route: 048
     Dates: start: 20100223
  2. REVLIMID [Suspect]
     Route: 048
     Dates: start: 20100706, end: 20100726
  3. DEXAMETHASONE [Suspect]
     Route: 048
     Dates: start: 20100223
  4. DEXAMETHASONE [Suspect]
     Route: 048
     Dates: start: 20100706, end: 20100727
  5. AREDIA [Suspect]
     Indication: PRODUCT USED FOR UNKNOWN INDICATION
     Route: 051
  6. ASPIRIN [Concomitant]
     Indication: PRODUCT USED FOR UNKNOWN INDICATION
     Route: 048
     Dates: start: 20100223, end: 20100301
  7. COUMADIN [Concomitant]
     Indication: PRODUCT USED FOR UNKNOWN INDICATION
     Route: 065
     Dates: start: 20100401

REACTIONS (1)
  - BLOOD ALKALINE PHOSPHATASE INCREASED [None]
